FAERS Safety Report 16838286 (Version 1)
Quarter: 2019Q3

REPORT INFORMATION
  Report Type: Spontaneous
  Country: GB (occurrence: GB)
  Receive Date: 20190923
  Receipt Date: 20190923
  Transmission Date: 20191005
  Serious: Yes (Other)
  Sender: FDA-Public Use
  Company Number: GB-TEVA-2019-GB-1110302

PATIENT
  Age: 21 Year
  Sex: Female
  Weight: 58.96 kg

DRUGS (1)
  1. TRIMETHOPRIM. [Suspect]
     Active Substance: TRIMETHOPRIM
     Indication: URINARY TRACT INFECTION
     Dosage: 400 MG PER DAY
     Route: 048
     Dates: end: 20160219

REACTIONS (5)
  - Mouth ulceration [Unknown]
  - Rash [Recovered/Resolved]
  - Influenza like illness [Unknown]
  - Skin burning sensation [Recovered/Resolved]
  - Skin discolouration [Unknown]
